FAERS Safety Report 18997018 (Version 1)
Quarter: 2021Q1

REPORT INFORMATION
  Report Type: Spontaneous
  Country: US (occurrence: US)
  Receive Date: 20210311
  Receipt Date: 20210311
  Transmission Date: 20210420
  Serious: Yes (Other)
  Sender: FDA-Public Use
  Company Number: None

PATIENT
  Age: 67 Year
  Sex: Female
  Weight: 101.25 kg

DRUGS (1)
  1. ALTAFLUOR [Suspect]
     Active Substance: BENOXINATE HYDROCHLORIDE\FLUORESCEIN SODIUM
     Indication: CATARACT
     Dosage: ?          OTHER FREQUENCY:USED ONCE;?
     Route: 061
     Dates: start: 20210210, end: 20210210

REACTIONS (8)
  - Rash [None]
  - Nausea [None]
  - Weight decreased [None]
  - Reaction to food additive [None]
  - Documented hypersensitivity to administered product [None]
  - Ocular hyperaemia [None]
  - Confusional state [None]
  - Swelling face [None]

NARRATIVE: CASE EVENT DATE: 20210210
